FAERS Safety Report 24214524 (Version 2)
Quarter: 2024Q3

REPORT INFORMATION
  Report Type: Spontaneous
  Country: US (occurrence: US)
  Receive Date: 20240815
  Receipt Date: 20240828
  Transmission Date: 20241016
  Serious: Yes (Other)
  Sender: TEVA
  Company Number: US-TEVA-VS-3230751

PATIENT
  Age: 62 Year
  Sex: Female

DRUGS (5)
  1. MUPIROCIN [Suspect]
     Active Substance: MUPIROCIN
     Indication: Rash pustular
     Route: 061
  2. AMIVANTAMAB [Suspect]
     Active Substance: AMIVANTAMAB
     Indication: Lung adenocarcinoma
     Route: 065
  3. KETOCONAZOLE [Suspect]
     Active Substance: KETOCONAZOLE
     Indication: Rash pustular
     Dosage: SHAMPOO
     Route: 065
  4. FLUOCINOLONE ACETONIDE [Suspect]
     Active Substance: FLUOCINOLONE ACETONIDE
     Indication: Rash pustular
     Route: 065
  5. OSIMERTINIB [Concomitant]
     Active Substance: OSIMERTINIB
     Indication: Lung adenocarcinoma
     Route: 065

REACTIONS (4)
  - Rash pustular [Recovered/Resolved]
  - Skin erosion [Recovered/Resolved]
  - Dermatitis [Recovered/Resolved]
  - Therapy non-responder [Unknown]
